FAERS Safety Report 7182979-0 (Version None)
Quarter: 2010Q4

REPORT INFORMATION
  Report Type: 
  Country: None (occurrence: None)
  Receive Date: 20101123
  Receipt Date: 20101110
  Transmission Date: 20110411
  Serious: Yes (Hospitalization)
  Sender: FDA-Public Use
  Company Number: ADR-209-88

PATIENT
  Age: 60 Year
  Sex: Female
  Weight: 67.1324 kg

DRUGS (7)
  1. TERBINAFINE HYDROCHLORIDE [Suspect]
     Indication: RASH
     Dosage: 250 MG 1/DAY, ORAL
     Route: 048
  2. LOVASTATIN [Concomitant]
  3. LOSINOPRIL [Concomitant]
  4. METOPROLOL [Concomitant]
  5. HYDROCHLOROTHIAZIDE [Concomitant]
  6. LEVOTHYROXINE SODIUM [Concomitant]
  7. BUSPIRONE HCL [Concomitant]

REACTIONS (2)
  - DYSPHAGIA [None]
  - URTICARIA [None]
